FAERS Safety Report 6390487-X (Version None)
Quarter: 2009Q4

REPORT INFORMATION
  Report Type: 
  Country: None (occurrence: None)
  Receive Date: 20091006
  Receipt Date: 20090903
  Transmission Date: 20100525
  Serious: No
  Sender: FDA-Public Use
  Company Number: US-BAYER-200914224BCC

PATIENT
  Age: 67 Year
  Sex: Female
  Weight: 59 kg

DRUGS (4)
  1. ALEVE [Suspect]
     Indication: INFLUENZA IMMUNISATION
     Dosage: TOTAL DAILY DOSE: 440 MG  UNIT DOSE: 220 MG
     Route: 048
     Dates: start: 20090903
  2. ARIMIDEX [Concomitant]
     Route: 065
  3. VITAMINS [Concomitant]
     Route: 065
  4. ADVAIR DISKUS 100/50 [Concomitant]
     Route: 065

REACTIONS (1)
  - EYE HAEMORRHAGE [None]
